FAERS Safety Report 10579748 (Version 1)
Quarter: 2014Q4

REPORT INFORMATION
  Report Type: Spontaneous
  Country: US (occurrence: US)
  Receive Date: 20141112
  Receipt Date: 20141112
  Transmission Date: 20150529
  Serious: Yes (Other)
  Sender: FDA-Public Use
  Company Number: US-TEVA-521793USA

PATIENT
  Age: 27 Year
  Sex: Female
  Weight: 60.84 kg

DRUGS (2)
  1. BORIC ACID [Concomitant]
     Active Substance: BORIC ACID
     Indication: BACTERIAL VAGINOSIS
  2. PARAGARD T380A [Suspect]
     Active Substance: COPPER
     Indication: CONTRACEPTION
     Route: 015
     Dates: start: 20140918, end: 20141106

REACTIONS (4)
  - Vaginal haemorrhage [Recovered/Resolved]
  - Pelvic pain [Recovered/Resolved]
  - Bacterial vaginosis [Unknown]
  - Device dislocation [Recovered/Resolved]

NARRATIVE: CASE EVENT DATE: 20140918
